FAERS Safety Report 8471007-2 (Version None)
Quarter: 2012Q2

REPORT INFORMATION
  Report Type: 
  Country: None (occurrence: None)
  Receive Date: 20120627
  Receipt Date: 20120615
  Transmission Date: 20120825
  Serious: Yes (Other)
  Sender: FDA-Public Use
  Company Number: JP-ELI_LILLY_AND_COMPANY-JP201206005363

PATIENT
  Age: 75 Year
  Sex: Female

DRUGS (1)
  1. FORTEO [Suspect]
     Route: 058

REACTIONS (5)
  - HYPOAESTHESIA [None]
  - PAIN IN EXTREMITY [None]
  - BACK PAIN [None]
  - PULMONARY MYCOSIS [None]
  - MUSCULOSKELETAL PAIN [None]
